FAERS Safety Report 8105490-9 (Version None)
Quarter: 2012Q1

REPORT INFORMATION
  Report Type: 
  Country: None (occurrence: None)
  Receive Date: 20120201
  Receipt Date: 20120127
  Transmission Date: 20120608
  Serious: Yes (Other)
  Sender: FDA-Public Use
  Company Number: US-PFIZER INC-2011257267

PATIENT
  Sex: Female

DRUGS (4)
  1. LYRICA [Suspect]
     Dosage: UNK
  2. LIPITOR [Suspect]
     Dosage: UNK
  3. PREMPRO [Suspect]
     Dosage: UNK
  4. PROTONIX [Suspect]
     Dosage: UNK

REACTIONS (1)
  - VISUAL IMPAIRMENT [None]
